FAERS Safety Report 19232762 (Version 1)
Quarter: 2021Q2

REPORT INFORMATION
  Report Type: Spontaneous
  Country: CN (occurrence: CN)
  Receive Date: 20210507
  Receipt Date: 20210507
  Transmission Date: 20210717
  Serious: Yes (Hospitalization, Other)
  Sender: FDA-Public Use
  Company Number: CN-PFIZER INC-2021481576

PATIENT
  Age: 13 Year
  Sex: Female
  Weight: 73 kg

DRUGS (3)
  1. SEROQUEL [Suspect]
     Active Substance: QUETIAPINE FUMARATE
     Dosage: 10 DF, 1X/DAY
     Route: 048
     Dates: start: 20210315, end: 20210315
  2. SODIUM VALPROATE [Suspect]
     Active Substance: VALPROATE SODIUM
     Dosage: 6 DF, 1X/DAY
     Route: 048
     Dates: start: 20210315, end: 20210315
  3. SERTRALINE HCL [Suspect]
     Active Substance: SERTRALINE HYDROCHLORIDE
     Dosage: 10 DF, 1X/DAY
     Route: 048
     Dates: start: 20210315, end: 20210315

REACTIONS (10)
  - Coma [Unknown]
  - Tremor [Unknown]
  - Asthenia [Unknown]
  - Flushing [Unknown]
  - Nausea [Not Recovered/Not Resolved]
  - Abdominal pain [Unknown]
  - Suicide attempt [Recovering/Resolving]
  - Retching [Not Recovered/Not Resolved]
  - Intentional overdose [Recovering/Resolving]
  - Dizziness [Unknown]

NARRATIVE: CASE EVENT DATE: 20210315
